FAERS Safety Report 9022164 (Version 1)
Quarter: 2013Q1

REPORT INFORMATION
  Report Type: Spontaneous
  Country: US (occurrence: US)
  Receive Date: 20130119
  Receipt Date: 20130119
  Transmission Date: 20140127
  Serious: No
  Sender: FDA-Public Use
  Company Number: US-009507513-1301USA003330

PATIENT
  Sex: Male

DRUGS (4)
  1. SIMVASTATIN TABLETS, USP [Suspect]
     Indication: BLOOD CHOLESTEROL INCREASED
     Dosage: 20 MG, QD
     Route: 048
     Dates: start: 201211
  2. NIACIN [Suspect]
     Indication: BLOOD CHOLESTEROL INCREASED
     Dosage: 500 MG, QD
     Route: 048
     Dates: start: 201211
  3. CARVEDILOL [Concomitant]
     Dosage: UNK
  4. VITAMINS (UNSPECIFIED) [Concomitant]

REACTIONS (1)
  - Abdominal pain upper [Not Recovered/Not Resolved]
